FAERS Safety Report 20245182 (Version 1)
Quarter: 2021Q4

REPORT INFORMATION
  Report Type: Spontaneous
  Country: CN (occurrence: CN)
  Receive Date: 20211229
  Receipt Date: 20211229
  Transmission Date: 20220304
  Serious: Yes (Other)
  Sender: FDA-Public Use
  Company Number: CN-AstraZeneca-2021A891698

PATIENT
  Age: 84 Year
  Sex: Female

DRUGS (3)
  1. METOPROLOL [Suspect]
     Active Substance: METOPROLOL
     Dosage: ORIGINALLY, HALF A TABLET ONCE
     Route: 048
     Dates: start: 20211114
  2. METOPROLOL [Suspect]
     Active Substance: METOPROLOL
     Dosage: QUARTER OF THE TABLET TWICE
     Route: 048
  3. METOPROLOL [Suspect]
     Active Substance: METOPROLOL
     Dosage: QUARTER OF THE TABLET ONCE
     Route: 048

REACTIONS (5)
  - Shock [Unknown]
  - Flatulence [Unknown]
  - Chest discomfort [Unknown]
  - Insomnia [Unknown]
  - Intentional product use issue [Unknown]
